FAERS Safety Report 22816613 (Version 4)
Quarter: 2023Q4

REPORT INFORMATION
  Report Type: Spontaneous
  Country: US (occurrence: US)
  Receive Date: 20230811
  Receipt Date: 20231130
  Transmission Date: 20240109
  Serious: Yes (Other)
  Sender: FDA-Public Use
  Company Number: US-APELLIS PHARMACEUTICALS-APL-2023-002758

PATIENT
  Age: 65 Year
  Sex: Female

DRUGS (3)
  1. SYFOVRE [Suspect]
     Active Substance: PEGCETACOPLAN
     Indication: Product used for unknown indication
     Dosage: UNK, OS
     Dates: start: 20230713
  2. SYFOVRE [Suspect]
     Active Substance: PEGCETACOPLAN
     Dosage: UNK, OD
     Dates: start: 20230713
  3. BENAZEPRIL [Concomitant]
     Active Substance: BENAZEPRIL HYDROCHLORIDE
     Indication: Blood pressure measurement
     Dosage: 5 MILLIGRAM, QD
     Route: 065

REACTIONS (2)
  - Vitritis [Recovered/Resolved]
  - Vitritis [Recovered/Resolved]

NARRATIVE: CASE EVENT DATE: 20230101
